FAERS Safety Report 9433953 (Version 2)
Quarter: 2013Q3

REPORT INFORMATION
  Report Type: Spontaneous
  Country: US (occurrence: US)
  Receive Date: 20130801
  Receipt Date: 20130906
  Transmission Date: 20140515
  Serious: No
  Sender: FDA-Public Use
  Company Number: US-B.I. PHARMACEUTICALS,INC./RIDGEFIELD-2013-BI-22038BP

PATIENT
  Age: 84 Year
  Sex: Male
  Weight: 84 kg

DRUGS (13)
  1. PRADAXA [Suspect]
     Indication: ATRIAL FIBRILLATION
     Dosage: 150 MG
     Route: 048
  2. PRADAXA [Suspect]
     Indication: CEREBROVASCULAR ACCIDENT PROPHYLAXIS
  3. ZYRTEC [Concomitant]
     Dosage: 10 MG
     Route: 048
  4. PLAVIX [Concomitant]
     Dosage: 75 MG
     Route: 048
  5. NASALCROM [Concomitant]
     Dosage: (NASAL SPRAY)
  6. FINASTERIDE [Concomitant]
     Dosage: 5 MG
     Route: 048
  7. TERAZOSIN [Concomitant]
     Dosage: 10 MG
     Route: 048
  8. ASPIRIN [Concomitant]
     Dosage: 325 MG
     Route: 048
  9. FUROSEMIDE [Concomitant]
     Dosage: 10 MG
     Route: 048
  10. ZOLOFT [Concomitant]
     Dosage: 50 MG
     Route: 048
  11. BETAPACE [Concomitant]
     Dosage: 160 MG
     Route: 048
  12. CALCIUM AND VITAMIN D [Concomitant]
     Dosage: 2 ANZ
     Route: 048
  13. CRESTOR [Concomitant]
     Dosage: 5 MG
     Route: 048

REACTIONS (2)
  - Oedema peripheral [Not Recovered/Not Resolved]
  - Nodule [Not Recovered/Not Resolved]
